FAERS Safety Report 9320434 (Version 1)
Quarter: 2013Q2

REPORT INFORMATION
  Report Type: Report from Study
  Country: GB (occurrence: AR)
  Receive Date: 20130530
  Receipt Date: 20130530
  Transmission Date: 20140414
  Serious: Yes (Death, Hospitalization)
  Sender: FDA-Public Use
  Company Number: AR-B.I. PHARMACEUTICALS,INC./RIDGEFIELD-2013-BI-15072GD

PATIENT
  Age: 56 Year
  Sex: Female

DRUGS (5)
  1. TIOTROPIUM [Suspect]
     Indication: CHRONIC OBSTRUCTIVE PULMONARY DISEASE
     Dosage: 18 MCG
     Route: 055
  2. FLUTICASONE [Suspect]
     Dosage: 100 MG
     Route: 048
     Dates: start: 20100915, end: 20110424
  3. SALBUTAMOL [Suspect]
  4. FUROSEMIDE [Concomitant]
     Dosage: 40 MG
  5. ESPIRONOLACTONA [Concomitant]
     Dosage: 25 MG

REACTIONS (3)
  - Cardio-respiratory arrest [Fatal]
  - Pancreatic neoplasm [Recovered/Resolved]
  - Bile duct obstruction [Recovered/Resolved]
